FAERS Safety Report 7216191-3 (Version None)
Quarter: 2011Q1

REPORT INFORMATION
  Report Type: 
  Country: None (occurrence: None)
  Receive Date: 20110107
  Receipt Date: 20101129
  Transmission Date: 20110831
  Serious: Yes (Death, Other)
  Sender: FDA-Public Use
  Company Number: US-BAXTER-2010BH003524

PATIENT
  Age: 34 Year
  Sex: Female

DRUGS (13)
  1. HEPARIN SODIUM INJECTION [Suspect]
     Route: 042
     Dates: start: 20080714, end: 20080714
  2. LISINOPRIL [Concomitant]
     Indication: PRODUCT USED FOR UNKNOWN INDICATION
     Route: 065
     Dates: end: 20080714
  3. FENTANYL [Concomitant]
     Indication: ANAESTHESIA
     Route: 065
     Dates: start: 20080714, end: 20080714
  4. HEPARIN SODIUM INJECTION [Suspect]
     Indication: ANTICOAGULANT THERAPY
     Route: 065
  5. MARCAINE                                /USA/ [Concomitant]
     Indication: PRODUCT USED FOR UNKNOWN INDICATION
     Route: 065
     Dates: start: 20080714, end: 20080714
  6. PROPOFOL [Concomitant]
     Indication: ANAESTHESIA
     Route: 065
     Dates: start: 20080714, end: 20080714
  7. CLONIDINE [Concomitant]
     Indication: PRODUCT USED FOR UNKNOWN INDICATION
     Route: 065
     Dates: end: 20080714
  8. LIDOCAINE HYDROCHLORIDE IN PLASTIC CONTAINER [Concomitant]
     Indication: ANAESTHESIA
     Route: 065
     Dates: start: 20080714, end: 20080714
  9. ZYVOX [Concomitant]
     Indication: PREOPERATIVE CARE
     Route: 048
  10. HEPARIN SODIUM INJECTION [Suspect]
     Indication: ARTERIOVENOUS FISTULA OPERATION
     Route: 065
  11. HEPARIN SODIUM INJECTION [Suspect]
     Route: 042
     Dates: start: 20080714, end: 20080714
  12. LEVAQUIN [Concomitant]
     Indication: PREOPERATIVE CARE
     Route: 048
  13. ROBINUL [Concomitant]
     Indication: PREOPERATIVE CARE
     Route: 042

REACTIONS (6)
  - HYPOTENSION [None]
  - ABDOMINAL PAIN [None]
  - ANAPHYLACTIC REACTION [None]
  - BRADYCARDIA [None]
  - CARDIAC ARREST [None]
  - CIRCULATORY COLLAPSE [None]
